FAERS Safety Report 16451354 (Version 1)
Quarter: 2019Q2

REPORT INFORMATION
  Report Type: Spontaneous
  Country: US (occurrence: US)
  Receive Date: 20190619
  Receipt Date: 20190619
  Transmission Date: 20190711
  Serious: No
  Sender: FDA-Public Use
  Company Number: US-PFIZER INC-2019262646

PATIENT
  Age: 75 Year
  Sex: Female

DRUGS (1)
  1. IRINOTECAN HCL [Suspect]
     Active Substance: IRINOTECAN HYDROCHLORIDE
     Indication: COLON CANCER
     Dosage: 283 MG, UNK
     Dates: start: 20180801, end: 20190508

REACTIONS (1)
  - Neoplasm progression [Unknown]
